FAERS Safety Report 9551751 (Version 1)
Quarter: 2013Q3

REPORT INFORMATION
  Report Type: Spontaneous
  Country: US (occurrence: None)
  Receive Date: 20130724
  Receipt Date: 20130724
  Transmission Date: 20140515
  Serious: Yes (Other)
  Sender: FDA-Public Use
  Company Number: PHEH2013US004710

PATIENT
  Age: 76 Year
  Sex: Male

DRUGS (7)
  1. GLEEVEC [Suspect]
     Indication: CHRONIC MYELOID LEUKAEMIA
     Route: 048
     Dates: start: 20070601
  2. GUANFACINE (GUANFACINE) [Concomitant]
  3. ASPIRIN (ACETYLSALICYCLIC ACID) [Concomitant]
  4. ANTIHISTAMINES (NO INGREDIENTS/SUBSTANCES) [Concomitant]
  5. COLECALCIFEROL (COLECALCIFEROL) [Concomitant]
  6. ATENOLOL (ATENOLOL) [Concomitant]
  7. GABAPENTIN (GABAPENTIN) [Concomitant]

REACTIONS (5)
  - Peroneal nerve palsy [None]
  - Abdominal discomfort [None]
  - Fluid retention [None]
  - Rash [None]
  - Drug intolerance [None]
